FAERS Safety Report 6463804-X (Version None)
Quarter: 2009Q4

REPORT INFORMATION
  Report Type: 
  Country: None (occurrence: None)
  Receive Date: 20091201
  Receipt Date: 20091120
  Transmission Date: 20100525
  Serious: Yes (Hospitalization)
  Sender: FDA-Public Use
  Company Number: FR-JNJFOC-20090908056

PATIENT
  Age: 58 Year
  Sex: Female

DRUGS (9)
  1. LEVOFLOXACIN [Suspect]
     Indication: DRUG USE FOR UNKNOWN INDICATION
     Route: 048
  2. MIRTAZAPINE [Interacting]
     Route: 048
  3. MIRTAZAPINE [Interacting]
     Indication: DECREASED APPETITE
     Route: 048
  4. METOCLOPRAMIDE [Interacting]
     Indication: DRUG USE FOR UNKNOWN INDICATION
     Route: 048
  5. ENOXAPARIN SODIUM [Concomitant]
     Route: 058
  6. NYSTATIN [Concomitant]
     Route: 048
  7. PANTOPRAZOLE [Concomitant]
     Route: 048
  8. ACETAMINOPHEN [Concomitant]
     Indication: PYREXIA
     Route: 048
  9. CEFEPIME [Concomitant]
     Route: 042

REACTIONS (2)
  - DRUG INTERACTION [None]
  - GRAND MAL CONVULSION [None]
